FAERS Safety Report 8906062 (Version 4)
Quarter: 2013Q1

REPORT INFORMATION
  Report Type: Report from Study
  Country: DE (occurrence: DE)
  Receive Date: 20121113
  Receipt Date: 20130108
  Transmission Date: 20140127
  Serious: Yes (Hospitalization, Other)
  Sender: FDA-Public Use
  Company Number: DE-ABBOTT-12P-062-1004583-00

PATIENT
  Sex: Female
  Weight: 75 kg

DRUGS (3)
  1. HUMIRA PRE-FILLED SYRINGE [Suspect]
     Indication: RHEUMATOID ARTHRITIS
     Dosage: 40 MG
     Route: 058
     Dates: start: 20061211, end: 20120718
  2. HUMIRA PRE-FILLED SYRINGE [Suspect]
     Route: 058
     Dates: start: 20120718
  3. PREDNISOLONE [Concomitant]
     Indication: RHEUMATOID ARTHRITIS
     Dates: end: 2012

REACTIONS (5)
  - Fat necrosis [Unknown]
  - Subcutaneous abscess [Recovered/Resolved]
  - Purulence [Unknown]
  - Inflammation [Unknown]
  - Fibrosis [Unknown]
